FAERS Safety Report 4704484-0 (Version None)
Quarter: 2005Q2

REPORT INFORMATION
  Report Type: 
  Country: None (occurrence: None)
  Receive Date: 20050628
  Receipt Date: 20050615
  Transmission Date: 20051028
  Serious: Yes (Death)
  Sender: FDA-Public Use
  Company Number: AU_050508605

PATIENT
  Age: 25 Year
  Sex: Male

DRUGS (6)
  1. ZYPREXA [Suspect]
     Indication: AGITATION
     Dosage: 10 MG        IM
     Route: 030
     Dates: start: 20040601, end: 20040601
  2. ZYPREXA [Suspect]
     Indication: SCHIZOPHRENIA
     Route: 048
  3. CHLORPROMAZINE HCL [Concomitant]
  4. BENZODIAZEPINE [Concomitant]
     Dosage: 2
  5. CLONAZEPAM [Concomitant]
     Dosage: 2MG
  6. PENICILLIN              (PHENOXYMETHYLPENICILLIN BENZATHINE) [Concomitant]
     Indication: UPPER RESPIRATORY TRACT INFECTION

REACTIONS (7)
  - AGGRESSION [None]
  - AGITATION [None]
  - ASTHMA [None]
  - HALLUCINATION [None]
  - PARANOIA [None]
  - STATUS ASTHMATICUS [None]
  - UPPER RESPIRATORY TRACT INFECTION [None]
